FAERS Safety Report 24189007 (Version 1)
Quarter: 2024Q3

REPORT INFORMATION
  Report Type: Spontaneous
  Country: US (occurrence: US)
  Receive Date: 20240808
  Receipt Date: 20240808
  Transmission Date: 20241017
  Serious: No
  Sender: OTSUKA
  Company Number: US-OTSUKA-2023_029730

PATIENT
  Age: 53 Year
  Sex: Male

DRUGS (21)
  1. ARIPIPRAZOLE [Suspect]
     Active Substance: ARIPIPRAZOLE
     Indication: Major depression
     Dosage: UNK
     Route: 065
  2. ARIPIPRAZOLE [Suspect]
     Active Substance: ARIPIPRAZOLE
     Indication: Obsessive-compulsive disorder
  3. ARIPIPRAZOLE [Suspect]
     Active Substance: ARIPIPRAZOLE
     Indication: Generalised anxiety disorder
  4. LORAZEPAM [Concomitant]
     Active Substance: LORAZEPAM
     Indication: Generalised anxiety disorder
     Dosage: 0.5 MG
     Route: 065
  5. LORAZEPAM [Concomitant]
     Active Substance: LORAZEPAM
     Indication: Obsessive-compulsive disorder
  6. LORAZEPAM [Concomitant]
     Active Substance: LORAZEPAM
     Indication: Major depression
  7. SEROQUEL [Concomitant]
     Active Substance: QUETIAPINE FUMARATE
     Indication: Generalised anxiety disorder
     Dosage: UNK
     Route: 065
  8. SEROQUEL [Concomitant]
     Active Substance: QUETIAPINE FUMARATE
     Indication: Obsessive-compulsive disorder
  9. SEROQUEL [Concomitant]
     Active Substance: QUETIAPINE FUMARATE
     Indication: Major depression
  10. OLANZAPINE [Concomitant]
     Active Substance: OLANZAPINE
     Indication: Generalised anxiety disorder
     Dosage: UNK
     Route: 065
  11. OLANZAPINE [Concomitant]
     Active Substance: OLANZAPINE
     Indication: Obsessive-compulsive disorder
  12. OLANZAPINE [Concomitant]
     Active Substance: OLANZAPINE
     Indication: Major depression
  13. FLUOXETINE [Concomitant]
     Active Substance: FLUOXETINE HYDROCHLORIDE
     Indication: Generalised anxiety disorder
     Dosage: UNK
     Route: 065
  14. FLUOXETINE [Concomitant]
     Active Substance: FLUOXETINE HYDROCHLORIDE
     Indication: Obsessive-compulsive disorder
  15. FLUOXETINE [Concomitant]
     Active Substance: FLUOXETINE HYDROCHLORIDE
     Indication: Major depression
  16. BUSPIRONE [Concomitant]
     Active Substance: BUSPIRONE HYDROCHLORIDE
     Indication: Generalised anxiety disorder
     Dosage: UNK
     Route: 065
  17. BUSPIRONE [Concomitant]
     Active Substance: BUSPIRONE HYDROCHLORIDE
     Indication: Obsessive-compulsive disorder
  18. BUSPIRONE [Concomitant]
     Active Substance: BUSPIRONE HYDROCHLORIDE
     Indication: Major depression
  19. KETAMINE [Concomitant]
     Active Substance: KETAMINE
     Indication: Generalised anxiety disorder
     Dosage: UNK
     Route: 065
  20. KETAMINE [Concomitant]
     Active Substance: KETAMINE
     Indication: Obsessive-compulsive disorder
  21. KETAMINE [Concomitant]
     Active Substance: KETAMINE
     Indication: Major depression

REACTIONS (2)
  - Drug ineffective for unapproved indication [Unknown]
  - Drug ineffective [Unknown]
